FAERS Safety Report 6088870-5 (Version None)
Quarter: 2009Q1

REPORT INFORMATION
  Report Type: 
  Country: None (occurrence: None)
  Receive Date: 20090224
  Receipt Date: 20090218
  Transmission Date: 20090719
  Serious: Yes (Death)
  Sender: FDA-Public Use
  Company Number: PHHY2009JP06101

PATIENT
  Age: 39 Year
  Sex: Female

DRUGS (5)
  1. SIMULECT [Suspect]
     Indication: RENAL TRANSPLANT
     Route: 042
  2. METHYLPREDNISOLONE 4MG TAB [Suspect]
     Indication: RENAL TRANSPLANT
  3. MYCOPHENOLATE MOFETIL [Suspect]
     Indication: RENAL TRANSPLANT
  4. TACROLIMUS [Concomitant]
     Indication: RENAL TRANSPLANT
  5. AZATHIOPRINE [Concomitant]
     Indication: RENAL TRANSPLANT

REACTIONS (2)
  - BLOOD LACTATE DEHYDROGENASE INCREASED [None]
  - LOWER GASTROINTESTINAL HAEMORRHAGE [None]
